FAERS Safety Report 6992678-3 (Version None)
Quarter: 2010Q3

REPORT INFORMATION
  Report Type: 
  Country: None (occurrence: None)
  Receive Date: 20100917
  Receipt Date: 20100909
  Transmission Date: 20110219
  Serious: Yes (Other)
  Sender: FDA-Public Use
  Company Number: B0674801A

PATIENT
  Sex: Female

DRUGS (4)
  1. ALLI [Suspect]
     Indication: WEIGHT CONTROL
     Dates: start: 20090801
  2. GLICLAZIDE [Concomitant]
     Dates: start: 20090101
  3. LOSARTAN POTASSIUM [Concomitant]
     Dates: start: 20090101
  4. CARVEDILOL [Concomitant]
     Dates: start: 20090101

REACTIONS (2)
  - PRODUCT QUALITY ISSUE [None]
  - SYNCOPE [None]
